FAERS Safety Report 23827101 (Version 1)
Quarter: 2024Q2

REPORT INFORMATION
  Report Type: Spontaneous
  Country: US (occurrence: US)
  Receive Date: 20240507
  Receipt Date: 20240507
  Transmission Date: 20240716
  Serious: No
  Sender: FDA-Public Use
  Company Number: US-GLENMARK PHARMACEUTICALS-2024GMK088845

PATIENT

DRUGS (1)
  1. RYALTRIS [Suspect]
     Active Substance: MOMETASONE FUROATE MONOHYDRATE\OLOPATADINE HYDROCHLORIDE
     Indication: Sinus disorder
     Dosage: UNK, BID
     Route: 045
     Dates: start: 202401

REACTIONS (4)
  - Drug dose omission by device [Unknown]
  - Product use in unapproved indication [Unknown]
  - Product preparation error [Unknown]
  - Device malfunction [Unknown]
